FAERS Safety Report 4358935-4 (Version None)
Quarter: 2004Q2

REPORT INFORMATION
  Report Type: 
  Country: None (occurrence: None)
  Receive Date: 20040512
  Receipt Date: 20040422
  Transmission Date: 20050107
  Serious: Yes (Other)
  Sender: FDA-Public Use
  Company Number: USA040465695

PATIENT
  Sex: Male

DRUGS (3)
  1. PROZAC [Suspect]
     Dosage: 20 MG/1 DAY
  2. ZYPREXA [Suspect]
     Dosage: 10 MG/1 DAY
  3. COGENTIN [Concomitant]

REACTIONS (3)
  - DYSPNOEA [None]
  - GLOSSOPTOSIS [None]
  - LOSS OF CONSCIOUSNESS [None]
